FAERS Safety Report 15681639 (Version 1)
Quarter: 2018Q4

REPORT INFORMATION
  Report Type: Other
  Country: US (occurrence: US)
  Receive Date: 20181203
  Receipt Date: 20181203
  Transmission Date: 20190205
  Serious: Yes (Hospitalization)
  Sender: FDA-Public Use
  Company Number: US-BIODELIVERY SCIENCES INTERNATIONAL-2018BDSI0642

PATIENT
  Age: 36 Year
  Sex: Female

DRUGS (7)
  1. MISOPROSTOL. [Interacting]
     Active Substance: MISOPROSTOL
     Indication: UTERINE ATONY
     Route: 002
  2. METHYLERGOMETRINE MALEATE [Suspect]
     Active Substance: METHYLERGONOVINE MALEATE
     Indication: POSTPARTUM HAEMORRHAGE
     Dosage: ADMINISTERED IN THE LEFT DELTOID MUSCLE
     Route: 030
  3. FENTANYL CITRATE. [Suspect]
     Active Substance: FENTANYL CITRATE
     Indication: SPINAL ANAESTHESIA
     Route: 065
  4. BUPIVACAINE. [Suspect]
     Active Substance: BUPIVACAINE
     Indication: SPINAL ANAESTHESIA
  5. OXYTOCIN. [Interacting]
     Active Substance: OXYTOCIN
     Indication: UTERINE ATONY
     Dosage: 30 UNITS IN 500ML SODIUM CHLORIDE
     Route: 050
  6. GLUCOSE [Suspect]
     Active Substance: DEXTROSE
     Indication: PRODUCT USED FOR UNKNOWN INDICATION
     Route: 065
  7. SODIUM CHLORIDE. [Concomitant]
     Active Substance: SODIUM CHLORIDE
     Indication: PRODUCT USED FOR UNKNOWN INDICATION
     Dosage: OXYTOCIN SOLUTION WAS PREPARED AS 30UNITS IN 500ML SODIUM CHLORIDE
     Route: 050

REACTIONS (5)
  - Cyanosis [Recovered/Resolved]
  - Drug interaction [Recovered/Resolved]
  - Exposure during pregnancy [Recovered/Resolved]
  - Acute pulmonary oedema [Recovered/Resolved]
  - Hypertension [Recovered/Resolved]
